FAERS Safety Report 8621673-3 (Version None)
Quarter: 2012Q3

REPORT INFORMATION
  Report Type: 
  Country: None (occurrence: None)
  Receive Date: 20120821
  Receipt Date: 20120821
  Transmission Date: 20120928
  Serious: Yes (Hospitalization)
  Sender: FDA-Public Use
  Company Number: None

PATIENT
  Age: 70 Year
  Sex: Female
  Weight: 63.05 kg

DRUGS (1)
  1. PROTONIX [Suspect]

REACTIONS (7)
  - DIARRHOEA [None]
  - MUSCLE TIGHTNESS [None]
  - ABDOMINAL PAIN UPPER [None]
  - CHEST PAIN [None]
  - THYROID DISORDER [None]
  - DYSPNOEA [None]
  - NECK PAIN [None]
